FAERS Safety Report 7509409-0 (Version None)
Quarter: 2011Q2

REPORT INFORMATION
  Report Type: 
  Country: None (occurrence: None)
  Receive Date: 20110527
  Receipt Date: 20110516
  Transmission Date: 20111010
  Serious: Yes (Other)
  Sender: FDA-Public Use
  Company Number: PHHY2011BR44650

PATIENT
  Age: 45 Year

DRUGS (5)
  1. KETOCONAZOLE [Suspect]
     Dosage: UNK
  2. FLUCONAZOLE [Suspect]
     Indication: PARACOCCIDIOIDES INFECTION
     Dosage: 200 MG, UNK
  3. ITRACONAZOLE [Suspect]
     Indication: PARACOCCIDIOIDES INFECTION
     Dosage: UNK
  4. SULFAMETHOXAZOLE AND TRIMETHOPRIM [Suspect]
     Indication: PARACOCCIDIOIDES INFECTION
     Dosage: UNK
  5. AMPHOTERICIN B [Suspect]
     Indication: PARACOCCIDIOIDES INFECTION
     Dosage: UNK

REACTIONS (3)
  - DRUG HYPERSENSITIVITY [None]
  - CONVULSION [None]
  - CEREBRAL CALCIFICATION [None]
